FAERS Safety Report 4748268-6 (Version None)
Quarter: 2005Q3

REPORT INFORMATION
  Report Type: 
  Country: None (occurrence: None)
  Receive Date: 20050815
  Receipt Date: 20050614
  Transmission Date: 20060218
  Serious: No
  Sender: FDA-Public Use
  Company Number: USA0506100435

PATIENT
  Age: 73 Year
  Sex: Male

DRUGS (3)
  1. CIALIS [Suspect]
     Indication: ERECTILE DYSFUNCTION
     Dosage: 20 MG DAY
  2. VITAMIN E [Concomitant]
  3. PRILOSEC [Concomitant]

REACTIONS (1)
  - MYALGIA [None]
